FAERS Safety Report 5941035-7 (Version None)
Quarter: 2008Q4

REPORT INFORMATION
  Report Type: 
  Country: None (occurrence: None)
  Receive Date: 20081104
  Receipt Date: 20080913
  Transmission Date: 20090506
  Serious: No
  Sender: FDA-Public Use
  Company Number: US-B.I. PHARMACEUTICALS,INC./RIDGEFIELD-2008-BP-14434BP

PATIENT
  Sex: Male

DRUGS (4)
  1. SPIRIVA [Suspect]
     Indication: CHRONIC OBSTRUCTIVE PULMONARY DISEASE
     Dosage: 18MCG
     Route: 055
     Dates: start: 20050101, end: 20080905
  2. PREDNISONE TAB [Concomitant]
     Route: 048
  3. BACTRIM [Concomitant]
     Route: 048
  4. FLOVENT [Concomitant]
     Dosage: 110MCG
     Route: 055

REACTIONS (2)
  - EYE PAIN [None]
  - OCULAR HYPERAEMIA [None]
